FAERS Safety Report 24416167 (Version 16)
Quarter: 2025Q4

REPORT INFORMATION
  Report Type: Report from Study
  Country: AR (occurrence: AR)
  Receive Date: 20241009
  Receipt Date: 20251208
  Transmission Date: 20260118
  Serious: Yes (Life-Threatening, Other)
  Sender: NOVARTIS
  Company Number: AR-002147023-NVSC2023AR271011

PATIENT
  Age: 38 Year
  Sex: Male
  Weight: 42 kg

DRUGS (14)
  1. COSENTYX [Suspect]
     Active Substance: SECUKINUMAB
     Indication: Hidradenitis
     Dosage: 300 MG, QMO
     Route: 058
     Dates: start: 20230908
  2. COSENTYX [Suspect]
     Active Substance: SECUKINUMAB
     Dosage: 600 MG, QMO
     Route: 058
     Dates: start: 20231109
  3. COSENTYX [Suspect]
     Active Substance: SECUKINUMAB
     Dosage: 300 MG, Q2W
     Route: 058
     Dates: start: 20231114
  4. COSENTYX [Suspect]
     Active Substance: SECUKINUMAB
     Dosage: 300 MG, QMO
     Route: 058
  5. COSENTYX [Suspect]
     Active Substance: SECUKINUMAB
     Dosage: 300 MG, Q2W
     Route: 058
     Dates: start: 20231123
  6. COSENTYX [Suspect]
     Active Substance: SECUKINUMAB
     Dosage: 300 MG, Q2W
     Route: 058
  7. COSENTYX [Suspect]
     Active Substance: SECUKINUMAB
     Dosage: 150 MG, QW
     Route: 058
  8. COSENTYX [Suspect]
     Active Substance: SECUKINUMAB
     Dosage: 600 MG, QMO
     Route: 058
  9. COSENTYX [Suspect]
     Active Substance: SECUKINUMAB
     Dosage: UNK
     Route: 058
  10. COSENTYX [Suspect]
     Active Substance: SECUKINUMAB
     Dosage: 300 MG, EVERY 15 DAYS
     Route: 058
  11. COSENTYX [Suspect]
     Active Substance: SECUKINUMAB
     Dosage: 600 MG, Q2W
     Route: 058
  12. METFORMIN [Concomitant]
     Active Substance: METFORMIN HYDROCHLORIDE
     Indication: Diabetes mellitus
     Dosage: 1000 G, QD
     Route: 065
  13. METFORMIN [Concomitant]
     Active Substance: METFORMIN HYDROCHLORIDE
     Dosage: UNK, BID (ONE IN THE MORNING AND ONE IN THE NIGHT, EVERY DAY)
     Route: 065
  14. METFORMIN [Concomitant]
     Active Substance: METFORMIN HYDROCHLORIDE
     Dosage: 1 G, QD
     Route: 065

REACTIONS (38)
  - Hidradenitis [Not Recovered/Not Resolved]
  - Wound [Unknown]
  - Wound complication [Unknown]
  - Injury [Unknown]
  - Musculoskeletal disorder [Unknown]
  - Fistula [Not Recovered/Not Resolved]
  - Pain [Recovered/Resolved]
  - Erythema [Unknown]
  - Erectile dysfunction [Unknown]
  - Diabetes mellitus [Unknown]
  - Axillary mass [Not Recovered/Not Resolved]
  - Pustule [Unknown]
  - Condition aggravated [Recovered/Resolved]
  - Hidradenitis [Recovered/Resolved]
  - Nodule [Unknown]
  - Scar [Unknown]
  - Inappropriate schedule of product administration [Unknown]
  - Product distribution issue [Unknown]
  - Muscle atrophy [Unknown]
  - Bone disorder [Unknown]
  - Arthralgia [Unknown]
  - Disease progression [Unknown]
  - Incorrect dose administered [Unknown]
  - Bone pain [Unknown]
  - Injection site pain [Unknown]
  - Rash [Recovered/Resolved]
  - Cough [Not Recovered/Not Resolved]
  - Insomnia [Unknown]
  - Nasopharyngitis [Unknown]
  - Gait disturbance [Unknown]
  - Anaemia [Unknown]
  - Infection [Unknown]
  - Mobility decreased [Unknown]
  - Fistula [Recovered/Resolved]
  - Red blood cell count decreased [Unknown]
  - Purulent discharge [Unknown]
  - Developmental delay [Unknown]
  - Emotional distress [Unknown]

NARRATIVE: CASE EVENT DATE: 20231109
